FAERS Safety Report 4343580-7 (Version None)
Quarter: 2004Q2

REPORT INFORMATION
  Report Type: 
  Country: None (occurrence: None)
  Receive Date: 20040421
  Receipt Date: 20040421
  Transmission Date: 20050107
  Serious: Yes (Hospitalization)
  Sender: FDA-Public Use
  Company Number: None

PATIENT
  Age: 57 Year
  Sex: Male
  Weight: 158.3054 kg

DRUGS (13)
  1. SPIRONOLACTONE [Suspect]
     Indication: CARDIAC FAILURE CONGESTIVE
     Dosage: 50 MG PO QD
     Route: 048
  2. KCL TAB [Suspect]
     Dosage: 10 MEQ TID
  3. LISINOPRIL [Suspect]
     Dosage: 20 MG BID
  4. FUROSEMIDE [Concomitant]
  5. GLYBURIDE [Concomitant]
  6. GEMFINROZIL [Concomitant]
  7. DIGOXIN [Concomitant]
  8. WARFARIN SODIUM [Concomitant]
  9. NITROGLYCERIN [Concomitant]
  10. METOPROLOL [Concomitant]
  11. LOVASTATIN [Concomitant]
  12. ASPIRIN [Concomitant]
  13. ACARBOSE [Concomitant]

REACTIONS (3)
  - BLOOD CREATININE INCREASED [None]
  - HYPERKALAEMIA [None]
  - RENAL IMPAIRMENT [None]
